FAERS Safety Report 17013224 (Version 1)
Quarter: 2019Q4

REPORT INFORMATION
  Report Type: Spontaneous
  Country: JP (occurrence: JP)
  Receive Date: 20191110
  Receipt Date: 20191110
  Transmission Date: 20200122
  Serious: Yes (Other)
  Sender: FDA-Public Use
  Company Number: NVSC2019JP027487

PATIENT
  Age: 3 Decade
  Sex: Female

DRUGS (4)
  1. IMUSERA [Suspect]
     Active Substance: FINGOLIMOD HYDROCHLORIDE
     Dosage: 0.5 MG, Q5W
     Route: 048
     Dates: start: 201805, end: 201807
  2. IMUSERA [Suspect]
     Active Substance: FINGOLIMOD HYDROCHLORIDE
     Dosage: 0.5 MG, Q2W
     Route: 048
     Dates: start: 201807, end: 201809
  3. IMUSERA [Suspect]
     Active Substance: FINGOLIMOD HYDROCHLORIDE
     Indication: MULTIPLE SCLEROSIS
     Dosage: 0.5 MG, QD
     Route: 048
     Dates: start: 201801, end: 201802
  4. IMUSERA [Suspect]
     Active Substance: FINGOLIMOD HYDROCHLORIDE
     Dosage: 0.5 MG, SIX TIMES A WEEK
     Route: 048
     Dates: start: 201802, end: 201805

REACTIONS (2)
  - Henoch-Schonlein purpura [Recovered/Resolved]
  - Lymphocyte count decreased [Recovered/Resolved]
